FAERS Safety Report 16283423 (Version 1)
Quarter: 2019Q2

REPORT INFORMATION
  Report Type: Spontaneous
  Country: US (occurrence: US)
  Receive Date: 20190507
  Receipt Date: 20190507
  Transmission Date: 20190711
  Serious: No
  Sender: FDA-Public Use
  Company Number: US-SANOFI-AVENTIS-2013SA052775

PATIENT
  Age: 60 Year
  Sex: Male

DRUGS (4)
  1. INVOKANA DUO [Concomitant]
     Active Substance: CANAGLIFLOZIN\METFORMIN HYDROCHLORIDE
     Dosage: UNKNOWN
     Route: 065
  2. LANTUS SOLOSTAR [Suspect]
     Active Substance: INSULIN GLARGINE
     Indication: TYPE 2 DIABETES MELLITUS
     Dosage: 36 DF,QD
     Route: 051
  3. SOLOSTAR [Suspect]
     Active Substance: DEVICE
     Indication: TYPE 2 DIABETES MELLITUS
     Dosage: UNK
     Route: 051
  4. LANTUS SOLOSTAR [Suspect]
     Active Substance: INSULIN GLARGINE
     Dosage: 50 UNITS OF LANTUS IN THE MORNING AND 40 UNITS OF LANTUS AT NIGHT
     Route: 065

REACTIONS (2)
  - Inappropriate schedule of product administration [Unknown]
  - Blood glucose abnormal [Unknown]
